FAERS Safety Report 15016371 (Version 1)
Quarter: 2018Q2

REPORT INFORMATION
  Report Type: Spontaneous
  Country: US (occurrence: US)
  Receive Date: 20180523
  Receipt Date: 20180523
  Transmission Date: 20180711
  Serious: Yes (Disabling)
  Sender: FDA-Public Use
  Company Number: None

PATIENT
  Age: 38 Year
  Sex: Female
  Weight: 58.06 kg

DRUGS (1)
  1. MIRENA [Suspect]
     Active Substance: LEVONORGESTREL
     Dates: start: 20141003, end: 20180219

REACTIONS (4)
  - Nausea [None]
  - Migraine [None]
  - Vomiting [None]
  - Visual impairment [None]

NARRATIVE: CASE EVENT DATE: 20180115
